FAERS Safety Report 6359880-5 (Version None)
Quarter: 2009Q3

REPORT INFORMATION
  Report Type: 
  Country: None (occurrence: None)
  Receive Date: 20090917
  Receipt Date: 20090915
  Transmission Date: 20100115
  Serious: Yes (Hospitalization)
  Sender: FDA-Public Use
  Company Number: IT-BRISTOL-MYERS SQUIBB COMPANY-14780340

PATIENT
  Age: 89 Year
  Sex: Female

DRUGS (4)
  1. IRBESARTAN AND HYDROCHLOROTHIAZIDE [Suspect]
     Dosage: STRENGTH=162.5MG
     Route: 048
     Dates: start: 20080824, end: 20090824
  2. MODURETIC 5-50 [Suspect]
     Route: 048
     Dates: start: 20080824, end: 20090824
  3. CARDIRENE [Concomitant]
     Route: 048
  4. CARDICOR [Concomitant]
     Route: 048

REACTIONS (5)
  - ABDOMINAL PAIN UPPER [None]
  - BLOOD SODIUM DECREASED [None]
  - DEHYDRATION [None]
  - MIGRAINE [None]
  - VERTIGO [None]
